FAERS Safety Report 4394379-7 (Version None)
Quarter: 2004Q3

REPORT INFORMATION
  Report Type: 
  Country: None (occurrence: None)
  Receive Date: 20040709
  Receipt Date: 20040709
  Transmission Date: 20050211
  Serious: No
  Sender: FDA-Public Use
  Company Number: None

PATIENT

DRUGS (2)
  1. SOTOLOL [Suspect]
     Indication: ATRIAL FIBRILLATION
     Dosage: 80 MG 1/2 TAB TID PO
     Route: 048
     Dates: start: 19991202
  2. BETAPACE [Concomitant]

REACTIONS (2)
  - DRUG INEFFECTIVE [None]
  - PHARMACEUTICAL PRODUCT COMPLAINT [None]
